FAERS Safety Report 14594949 (Version 1)
Quarter: 2018Q1

REPORT INFORMATION
  Report Type: Spontaneous
  Country: US (occurrence: US)
  Receive Date: 20180302
  Receipt Date: 20180302
  Transmission Date: 20180509
  Serious: No
  Sender: FDA-Public Use
  Company Number: US-AKORN PHARMACEUTICALS-2017AKN00621

PATIENT
  Sex: Female
  Weight: 60.77 kg

DRUGS (2)
  1. DEPO-PROVERA INJECTION [Concomitant]
     Indication: CONTRACEPTION
  2. MYORISAN [Suspect]
     Active Substance: ISOTRETINOIN
     Indication: ACNE
     Dosage: 80 MG, 1X/DAY
     Route: 048
     Dates: start: 201703, end: 20170505

REACTIONS (3)
  - Arthralgia [Recovered/Resolved]
  - Xerosis [Recovered/Resolved]
  - Lip dry [Recovered/Resolved]

NARRATIVE: CASE EVENT DATE: 2017
